FAERS Safety Report 6258391-5 (Version None)
Quarter: 2009Q3

REPORT INFORMATION
  Report Type: 
  Country: None (occurrence: None)
  Receive Date: 20090702
  Receipt Date: 20090702
  Transmission Date: 20100115
  Serious: Yes (Hospitalization)
  Sender: FDA-Public Use
  Company Number: None

PATIENT
  Sex: Male
  Weight: 112 kg

DRUGS (3)
  1. CHANTIX [Suspect]
     Indication: SMOKING CESSATION THERAPY
     Dosage: BID PO
     Route: 048
     Dates: start: 20080129, end: 20080211
  2. LEVAQUIN [Concomitant]
  3. VICOPHEN [Concomitant]

REACTIONS (4)
  - DEPRESSED MOOD [None]
  - DEPRESSION [None]
  - NEGATIVE THOUGHTS [None]
  - SUICIDE ATTEMPT [None]
